FAERS Safety Report 22287522 (Version 1)
Quarter: 2023Q2

REPORT INFORMATION
  Report Type: Spontaneous
  Country: CN (occurrence: CN)
  Receive Date: 20230505
  Receipt Date: 20230505
  Transmission Date: 20230722
  Serious: Yes (Hospitalization, Other)
  Sender: FDA-Public Use
  Company Number: CN-002147023-NVSC2023CN099400

PATIENT
  Age: 70 Year
  Sex: Male
  Weight: 57 kg

DRUGS (3)
  1. VORICONAZOLE [Suspect]
     Active Substance: VORICONAZOLE
     Indication: Hepatic encephalopathy
     Dosage: 200 MG, QD
     Route: 048
     Dates: start: 20230220, end: 20230228
  2. SULFAMETHOXAZOLE [Concomitant]
     Active Substance: SULFAMETHOXAZOLE
     Indication: Brain abscess
     Dosage: UNK
     Route: 065
     Dates: end: 20230228
  3. MINOCYCLINE [Concomitant]
     Active Substance: MINOCYCLINE HYDROCHLORIDE
     Indication: Brain abscess
     Dosage: UNK
     Route: 065
     Dates: end: 20230228

REACTIONS (2)
  - Hepatic encephalopathy [Unknown]
  - Liver injury [Recovering/Resolving]

NARRATIVE: CASE EVENT DATE: 20230220
